FAERS Safety Report 4883512-6 (Version None)
Quarter: 2006Q1

REPORT INFORMATION
  Report Type: 
  Country: None (occurrence: None)
  Receive Date: 20060113
  Receipt Date: 20060103
  Transmission Date: 20060701
  Serious: Yes (Other)
  Sender: FDA-Public Use
  Company Number: 2006003936

PATIENT
  Age: 40 Year
  Sex: Male
  Weight: 99 kg

DRUGS (8)
  1. EPLERENONE (EPLERENONE) [Suspect]
     Indication: CONGESTIVE CARDIOMYOPATHY
     Dosage: (25 MG), ORAL
     Route: 048
     Dates: start: 20051001, end: 20051115
  2. ALDACTONE [Suspect]
     Indication: CONGESTIVE CARDIOMYOPATHY
     Dates: start: 20050829
  3. ALLOPURINOL [Concomitant]
  4. BUMETANIDE [Concomitant]
  5. CARVEDILOL [Concomitant]
  6. DIGOXIN [Concomitant]
  7. LOSARTAN POTASSIUM [Concomitant]
  8. WARFARIN SODIUM [Concomitant]

REACTIONS (3)
  - DRUG EFFECT DECREASED [None]
  - DRUG INTERACTION INHIBITION [None]
  - NAUSEA [None]
